FAERS Safety Report 6244532-2 (Version None)
Quarter: 2009Q2

REPORT INFORMATION
  Report Type: 
  Country: None (occurrence: None)
  Receive Date: 20090619
  Receipt Date: 20090507
  Transmission Date: 20091009
  Serious: No
  Sender: FDA-Public Use
  Company Number: ALL1-2009-01313

PATIENT
  Age: 16 Year
  Sex: Female
  Weight: 112.5 kg

DRUGS (2)
  1. VYVANSE [Suspect]
     Indication: ATTENTION DEFICIT/HYPERACTIVITY DISORDER
     Dosage: 50 MG, 1X/DAY:QD, ORAL
     Route: 048
     Dates: start: 20090501
  2. MULTIVITAMIN /00831701/ (VITAMINS NOS) [Concomitant]

REACTIONS (3)
  - DIARRHOEA [None]
  - OFF LABEL USE [None]
  - WEIGHT INCREASED [None]
